FAERS Safety Report 7432907-5 (Version None)
Quarter: 2011Q2

REPORT INFORMATION
  Report Type: 
  Country: None (occurrence: None)
  Receive Date: 20110422
  Receipt Date: 20110419
  Transmission Date: 20111010
  Serious: Yes (Other)
  Sender: FDA-Public Use
  Company Number: US-PFIZER INC-2011072498

PATIENT
  Sex: Female
  Weight: 70.295 kg

DRUGS (5)
  1. EFFEXOR XR [Suspect]
     Indication: DEPRESSION
     Dosage: 150 MG, DAILY
     Route: 048
     Dates: start: 20070101, end: 20110101
  2. TOPIRAMATE [Concomitant]
     Dosage: 100 MG, UNK
  3. VENLAFAXINE HCL [Suspect]
     Indication: DEPRESSION
     Dosage: 150 MG, DAILY
     Route: 048
     Dates: start: 20110101
  4. RITALIN [Concomitant]
     Dosage: 20 MG, UNK
  5. SYNTHROID [Concomitant]
     Dosage: 100 MG, UNK

REACTIONS (3)
  - WITHDRAWAL SYNDROME [None]
  - NERVOUS SYSTEM DISORDER [None]
  - TINNITUS [None]
